FAERS Safety Report 25687320 (Version 1)
Quarter: 2025Q3

REPORT INFORMATION
  Report Type: Spontaneous
  Country: US (occurrence: US)
  Receive Date: 20250816
  Receipt Date: 20250816
  Transmission Date: 20251020
  Serious: Yes (Other)
  Sender: AMGEN
  Company Number: US-AMGEN-USASP2025162276

PATIENT

DRUGS (13)
  1. PREDNISONE [Suspect]
     Active Substance: PREDNISONE
     Indication: Immunosuppressant drug therapy
     Dosage: 20 MILLIGRAM, QD
     Route: 065
  2. PREDNISONE [Suspect]
     Active Substance: PREDNISONE
     Dosage: UNK, QD (TAPERED OVER 22 DAYS TO REACH A MAINTENANCE DOSE OF 5 MG DAILY)
     Route: 065
  3. PREDNISONE [Suspect]
     Active Substance: PREDNISONE
     Dosage: 5 MILLIGRAM, QD
     Route: 065
  4. TACROLIMUS [Concomitant]
     Active Substance: TACROLIMUS
     Indication: Immunosuppressant drug therapy
  5. MYCOPHENOLATE MOFETIL [Concomitant]
     Active Substance: MYCOPHENOLATE MOFETIL
     Indication: Immunosuppressant drug therapy
     Dosage: 1000 MILLIGRAM, BID
  6. METHYLPREDNISOLONE [Concomitant]
     Active Substance: METHYLPREDNISOLONE
     Indication: Immunosuppressant drug therapy
  7. METHYLPREDNISOLONE [Concomitant]
     Active Substance: METHYLPREDNISOLONE
     Dosage: 250 MILLIGRAM, QD (FOR 2 DAYS)
  8. BELATACEPT [Concomitant]
     Active Substance: BELATACEPT
     Route: 040
  9. BELATACEPT [Concomitant]
     Active Substance: BELATACEPT
     Route: 040
  10. BELATACEPT [Concomitant]
     Active Substance: BELATACEPT
     Route: 040
  11. BELATACEPT [Concomitant]
     Active Substance: BELATACEPT
     Route: 040
  12. BELATACEPT [Concomitant]
     Active Substance: BELATACEPT
     Route: 040
  13. BELATACEPT [Concomitant]
     Active Substance: BELATACEPT
     Dosage: 5 MILLIGRAM/KILOGRAM, Q4WK (EVERY 28 DAYS)
     Route: 040

REACTIONS (2)
  - Kidney transplant rejection [Recovered/Resolved]
  - Tremor [Unknown]
